FAERS Safety Report 15704318 (Version 1)
Quarter: 2018Q4

REPORT INFORMATION
  Report Type: Spontaneous
  Country: EG (occurrence: EG)
  Receive Date: 20181210
  Receipt Date: 20181210
  Transmission Date: 20190205
  Serious: Yes (Other)
  Sender: FDA-Public Use
  Company Number: PHHY2018EG176504

PATIENT
  Age: 18 Month
  Sex: Female
  Weight: 10 kg

DRUGS (2)
  1. CETAL [Concomitant]
     Indication: PRODUCT USED FOR UNKNOWN INDICATION
     Dosage: UNK
     Route: 065
  2. CEFTRIAXONE. [Suspect]
     Active Substance: CEFTRIAXONE
     Indication: BRONCHITIS
     Dosage: 0.5 G, ONCE/SINGLE
     Route: 030
     Dates: start: 20181204

REACTIONS (5)
  - Respiratory arrest [Recovered/Resolved]
  - Grunting [Recovered/Resolved]
  - Respiratory distress [Recovered/Resolved]
  - Asthma [Unknown]
  - Cyanosis [Recovered/Resolved]

NARRATIVE: CASE EVENT DATE: 20181204
